FAERS Safety Report 6600123-2 (Version None)
Quarter: 2010Q1

REPORT INFORMATION
  Report Type: 
  Country: None (occurrence: None)
  Receive Date: 20100224
  Receipt Date: 20100216
  Transmission Date: 20100710
  Serious: Yes (Other)
  Sender: FDA-Public Use
  Company Number: GXKR2010GB01903

PATIENT
  Age: 57 Year
  Sex: Female
  Weight: 90 kg

DRUGS (7)
  1. SIMVASTATIN [Suspect]
     Dosage: 40 MG, QD
     Route: 065
     Dates: end: 20091224
  2. TEMOZOLOMIDE [Interacting]
     Indication: GLIOBLASTOMA MULTIFORME
     Dosage: 150 MG, QD
     Route: 048
     Dates: start: 20091217, end: 20100104
  3. CO-TRIMOXAZOLE [Concomitant]
     Dosage: 960 MG, TIW
     Dates: start: 20091217, end: 20100104
  4. DALTEPARIN SODIUM [Concomitant]
     Indication: DEEP VEIN THROMBOSIS
     Dosage: 18000 IU, QD
     Route: 058
  5. DEXAMETHASONE [Concomitant]
     Dosage: UNK
     Route: 048
     Dates: end: 20100110
  6. DOMPERIDONE [Concomitant]
     Indication: PROPHYLAXIS OF NAUSEA AND VOMITING
     Dosage: 200 MG, QID
     Route: 048
     Dates: start: 20091217
  7. OMEPRAZOLE [Concomitant]
     Dosage: 200 MG, QD
     Route: 048

REACTIONS (2)
  - DRUG INTERACTION [None]
  - LIVER FUNCTION TEST ABNORMAL [None]
